FAERS Safety Report 6704204-4 (Version None)
Quarter: 2010Q2

REPORT INFORMATION
  Report Type: 
  Country: None (occurrence: None)
  Receive Date: 20100430
  Receipt Date: 20100420
  Transmission Date: 20101027
  Serious: Yes (Other)
  Sender: FDA-Public Use
  Company Number: TR-WATSON-2010-05603

PATIENT
  Age: 14 Month
  Sex: Male

DRUGS (1)
  1. CYANOCOBALAMIN [Suspect]
     Indication: VITAMIN B12 DEFICIENCY
     Dosage: 1 MG, DAILY
     Route: 030

REACTIONS (2)
  - DYSKINESIA [None]
  - TREMOR [None]
